FAERS Safety Report 11283843 (Version 1)
Quarter: 2015Q3

REPORT INFORMATION
  Report Type: Spontaneous
  Country: DE (occurrence: DE)
  Receive Date: 20150720
  Receipt Date: 20150720
  Transmission Date: 20151125
  Serious: Yes (Other)
  Sender: FDA-Public Use
  Company Number: DE-SA-2015SA089443

PATIENT
  Age: 26 Year
  Sex: Male

DRUGS (9)
  1. FENISTIL [Suspect]
     Active Substance: DIMETHINDENE
     Route: 042
     Dates: start: 20150615, end: 20150619
  2. PANTOPRAZOLE SODIUM. [Concomitant]
     Active Substance: PANTOPRAZOLE SODIUM
     Route: 048
     Dates: start: 20150615, end: 20150619
  3. LEMTRADA [Suspect]
     Active Substance: ALEMTUZUMAB
     Indication: MULTIPLE SCLEROSIS
     Route: 041
     Dates: start: 20150615, end: 20150619
  4. IBUPROFEN. [Concomitant]
     Active Substance: IBUPROFEN
     Route: 048
     Dates: start: 20150615, end: 20150619
  5. METHYLPREDNISOLONE. [Suspect]
     Active Substance: METHYLPREDNISOLONE
     Indication: MULTIPLE SCLEROSIS
     Route: 042
     Dates: start: 20150615, end: 20150619
  6. CETIRIZINE [Concomitant]
     Active Substance: CETIRIZINE HYDROCHLORIDE
     Route: 048
     Dates: start: 20150613, end: 20150619
  7. RANITIDINE [Concomitant]
     Active Substance: RANITIDINE\RANITIDINE HYDROCHLORIDE
     Route: 048
     Dates: start: 20150613, end: 20150619
  8. ACICLOVIR [Concomitant]
     Active Substance: ACYCLOVIR
     Route: 048
     Dates: start: 20150615, end: 20150619
  9. BETAFERON [Concomitant]
     Active Substance: INTERFERON BETA-1B
     Indication: MULTIPLE SCLEROSIS

REACTIONS (2)
  - Platelet count decreased [Recovered/Resolved]
  - Demyelination [Unknown]

NARRATIVE: CASE EVENT DATE: 20150616
